FAERS Safety Report 9508419 (Version 1)
Quarter: 2013Q1

REPORT INFORMATION
  Report Type: Spontaneous
  Country: US (occurrence: None)
  Receive Date: 20130305
  Receipt Date: 20130305
  Transmission Date: 20140127
  Serious: Yes (Hospitalization)
  Sender: FDA-Public Use
  Company Number: 163-21880-12051707

PATIENT
  Age: 85 Year
  Sex: Female

DRUGS (14)
  1. REVLIMID [Suspect]
     Indication: PLASMA CELL MYELOMA
     Route: 048
     Dates: start: 20081203, end: 20120508
  2. DULCOLAX (BISACODYL) [Concomitant]
  3. FUROSEMIDE (FUROSEMIDE) [Concomitant]
  4. KEFLEX (CEFALEXIN MONOHYDRATE) [Concomitant]
  5. LOTREL (LOTREL) [Concomitant]
  6. CLINDAMYCIN (CLINDAMYCIN) [Concomitant]
  7. LIPITOR (ATORVASTATIN) [Concomitant]
  8. BENICAR (OLMESSARTAN MEDOXOMIL) [Concomitant]
  9. CLARITIN (LORATADINE) [Concomitant]
  10. IMODIUM A-D (LOPERAMIDE HYDROCHLORIDE) [Concomitant]
  11. HCTZ/TRIAMT (DYAZIDE) [Concomitant]
  12. ARANESP (DARBEPOETIN ALFA) [Concomitant]
  13. COUMADIN (WARFARIN SODIUM) [Concomitant]
  14. HYDROCO/APAP (PROCET) [Concomitant]

REACTIONS (2)
  - Cellulitis [None]
  - White blood cell count decreased [None]
